FAERS Safety Report 8776909 (Version 1)
Quarter: 2012Q4

REPORT INFORMATION
  Report Type: 
  Country: JP (occurrence: JP)
  Receive Date: 20120911
  Receipt Date: 20120911
  Transmission Date: 20130627
  Serious: Yes (Life-Threatening)
  Sender: FDA-Public Use
  Company Number: JP-009507513-1105USA02365

PATIENT
  Age: 28 Year
  Sex: Female

DRUGS (3)
  1. HYDROCORTONE [Suspect]
     Indication: TINNITUS
     Dosage: UNK
     Route: 041
     Dates: start: 20080908, end: 20080908
  2. HYDROCORTONE [Suspect]
     Indication: SKIN TEST
     Dosage: UNK
     Route: 041
     Dates: start: 20081009, end: 20081009
  3. HYDROCORTONE [Suspect]
     Dosage: UNK
     Route: 041
     Dates: start: 20090810, end: 20091010

REACTIONS (3)
  - Anaphylactic shock [Recovered/Resolved]
  - Skin test positive [Unknown]
  - Anaphylactic shock [Unknown]
